FAERS Safety Report 22525968 (Version 1)
Quarter: 2023Q2

REPORT INFORMATION
  Report Type: Report from Study
  Country: JP (occurrence: JP)
  Receive Date: 20230606
  Receipt Date: 20230606
  Transmission Date: 20230722
  Serious: Yes (Other)
  Sender: FDA-Public Use
  Company Number: JP-JAZZ PHARMACEUTICALS-2023-JP-011973

PATIENT
  Age: 58 Year
  Sex: Male
  Weight: 52.7 kg

DRUGS (1)
  1. DEFITELIO [Suspect]
     Active Substance: DEFIBROTIDE SODIUM
     Indication: Venoocclusive liver disease
     Dosage: 25 MILLIGRAM/KILOGRAM, QD
     Route: 042
     Dates: start: 20220602, end: 20220620

REACTIONS (2)
  - Adenoviral haemorrhagic cystitis [Recovering/Resolving]
  - Adenovirus infection [Unknown]

NARRATIVE: CASE EVENT DATE: 20220620
